FAERS Safety Report 5729068-7 (Version None)
Quarter: 2008Q2

REPORT INFORMATION
  Report Type: 
  Country: None (occurrence: None)
  Receive Date: 20080506
  Receipt Date: 20060927
  Transmission Date: 20081010
  Serious: Yes (Other)
  Sender: FDA-Public Use
  Company Number: JP-PFIZER INC-2006094839

PATIENT
  Age: 37 Year
  Sex: Female

DRUGS (1)
  1. NASANYL [Suspect]
     Dosage: DAILY DOSE:400MCG-FREQ:DAILY
     Route: 055
     Dates: start: 20060620, end: 20060710

REACTIONS (1)
  - PLATELET COUNT DECREASED [None]
